FAERS Safety Report 8361726-0 (Version None)
Quarter: 2012Q2

REPORT INFORMATION
  Report Type: 
  Country: None (occurrence: None)
  Receive Date: 20120515
  Receipt Date: 20120507
  Transmission Date: 20120825
  Serious: Yes (Other)
  Sender: FDA-Public Use
  Company Number: FR-BAXTER-2012BAX002715

PATIENT
  Sex: Female

DRUGS (13)
  1. PHYSIONEAL 40 GLUCOSE 1,36%, SOLUTION POUR DIALYSE PERITONEALE [Suspect]
     Route: 033
  2. LASIX [Concomitant]
     Route: 065
  3. ARANESP [Concomitant]
     Route: 065
  4. PHYSIONEAL 40 GLUCOSE 1,36%, SOLUTION POUR DIALYSE PERITONEALE [Suspect]
     Route: 033
  5. EUPRESSYL                          /00631801/ [Concomitant]
     Route: 065
  6. BISOPROLOL FUMARATE [Concomitant]
     Route: 048
  7. FOSRENOL [Concomitant]
     Route: 065
  8. PHYSIONEAL 40 GLUCOSE 1,36%, SOLUTION POUR DIALYSE PERITONEALE [Suspect]
     Route: 033
     Dates: start: 20110718
  9. PHYSIONEAL 40 GLUCOSE 1,36%, SOLUTION POUR DIALYSE PERITONEALE [Suspect]
     Route: 033
  10. PHYSIONEAL 40 GLUCOSE 1,36%, SOLUTION POUR DIALYSE PERITONEALE [Suspect]
     Route: 033
  11. PHYSIONEAL 40 GLUCOSE 1,36%, SOLUTION POUR DIALYSE PERITONEALE [Suspect]
     Route: 033
  12. ESOMEPRAZOLE MAGNESIUM [Concomitant]
     Route: 048
  13. HYPERIUM [Concomitant]
     Route: 065

REACTIONS (5)
  - DIVERTICULUM INTESTINAL [None]
  - HYPOGAMMAGLOBULINAEMIA [None]
  - EOSINOPHILIA [None]
  - PLEURAL CALCIFICATION [None]
  - PERITONEAL CLOUDY EFFLUENT [None]
